FAERS Safety Report 6224554-8 (Version None)
Quarter: 2009Q2

REPORT INFORMATION
  Report Type: 
  Country: None (occurrence: None)
  Receive Date: 20090612
  Receipt Date: 20090323
  Transmission Date: 20091009
  Serious: Yes (Hospitalization)
  Sender: FDA-Public Use
  Company Number: US-ABBOTT-09P-163-0564024-00

PATIENT
  Sex: Female
  Weight: 63.56 kg

DRUGS (5)
  1. HUMIRA [Suspect]
     Indication: PSORIATIC ARTHROPATHY
     Route: 058
     Dates: start: 20070101, end: 20080601
  2. HUMIRA [Suspect]
     Route: 058
     Dates: start: 20081001
  3. LYRICA [Concomitant]
     Indication: FIBROMYALGIA
     Route: 048
  4. OXYCONTIN [Concomitant]
     Indication: ARTHRALGIA
     Dosage: 10MG DAILY PRN
     Route: 048
  5. OXYCONTIN [Concomitant]
     Route: 048

REACTIONS (4)
  - INCORRECT DOSE ADMINISTERED [None]
  - INJECTION SITE PAIN [None]
  - LYME DISEASE [None]
  - PYREXIA [None]
